FAERS Safety Report 10573841 (Version 3)
Quarter: 2015Q1

REPORT INFORMATION
  Report Type: Spontaneous
  Country: US (occurrence: US)
  Receive Date: 20141110
  Receipt Date: 20150125
  Transmission Date: 20150720
  Serious: No
  Sender: FDA-Public Use
  Company Number: US-ASTRAZENECA-2014SE83560

PATIENT
  Age: 1031 Month
  Sex: Female
  Weight: 77.1 kg

DRUGS (6)
  1. LEVOTHYROXINE [Concomitant]
     Active Substance: LEVOTHYROXINE
     Indication: THYROID DISORDER
     Route: 048
     Dates: start: 2012
  2. SUCRALFATE. [Concomitant]
     Active Substance: SUCRALFATE
     Indication: OESOPHAGEAL IRRITATION
     Route: 048
     Dates: start: 201410
  3. PLAVIX [Suspect]
     Active Substance: CLOPIDOGREL BISULFATE
     Route: 065
  4. BRILINTA [Suspect]
     Active Substance: TICAGRELOR
     Indication: ANTICOAGULANT THERAPY
     Route: 048
     Dates: start: 20141016
  5. SPIRONOLACTONE. [Concomitant]
     Active Substance: SPIRONOLACTONE
     Indication: BLOOD PRESSURE ABNORMAL
     Route: 048
     Dates: start: 2012
  6. LORAZEPAM. [Concomitant]
     Active Substance: LORAZEPAM
     Indication: ANXIETY
     Route: 048

REACTIONS (9)
  - Rash pruritic [Unknown]
  - Nausea [Unknown]
  - Abdominal pain [Unknown]
  - Malaise [Unknown]
  - Dyspnoea [Unknown]
  - Dizziness [Unknown]
  - Multiple allergies [Unknown]
  - Chest discomfort [Not Recovered/Not Resolved]
  - Dysphagia [Unknown]

NARRATIVE: CASE EVENT DATE: 201410
